FAERS Safety Report 9289579 (Version 3)
Quarter: 2013Q2

REPORT INFORMATION
  Report Type: Spontaneous
  Country: US (occurrence: US)
  Receive Date: 20130515
  Receipt Date: 20130618
  Transmission Date: 20140414
  Serious: Yes (Hospitalization, Other)
  Sender: FDA-Public Use
  Company Number: US-AMGEN-USASP2013032700

PATIENT
  Age: 72 Year
  Sex: Male
  Weight: 71.2 kg

DRUGS (15)
  1. PROLIA [Suspect]
     Indication: PRODUCT USED FOR UNKNOWN INDICATION
     Dosage: 60 MG, UNK
     Route: 058
     Dates: start: 20130409
  2. VITAMIN D                          /00107901/ [Concomitant]
  3. COUMADIN                           /00014802/ [Concomitant]
     Indication: ATRIAL FIBRILLATION
  4. LUMIGAN [Concomitant]
  5. BENADRYL                           /00000402/ [Concomitant]
  6. LIPITOR [Concomitant]
  7. FOLIC ACID [Concomitant]
     Dosage: 1 MG, UNK
  8. CARBIDOPA LEVODOPA [Concomitant]
  9. ATORVASTATIN CALCIUM [Concomitant]
  10. ASPIRIN ENTERIC COATED K.P. [Concomitant]
     Dosage: 81 MG, UNK
  11. SILENOR [Concomitant]
     Dosage: 6 MG, UNK
  12. LORATADINE [Concomitant]
  13. FERROUS SULFATE [Concomitant]
     Dosage: 325 MG, UNK
  14. DOCUSATE SODIUM [Concomitant]
  15. DIPHENHYDRAMINE HYDROCHLORIDE [Concomitant]

REACTIONS (15)
  - Altered state of consciousness [Recovered/Resolved]
  - Disorientation [Recovered/Resolved]
  - Dehydration [Recovered/Resolved]
  - Diarrhoea [Recovered/Resolved]
  - Blood calcium abnormal [Recovered/Resolved]
  - Hypomagnesaemia [Recovered/Resolved]
  - Malnutrition [Unknown]
  - Hypoglycaemia [Unknown]
  - Hypokalaemia [Unknown]
  - Asthenia [Unknown]
  - Atrial fibrillation [Unknown]
  - Confusional state [Recovered/Resolved]
  - Cellulitis [Recovered/Resolved]
  - Aphagia [Unknown]
  - Blood urine present [Unknown]
